FAERS Safety Report 6677227-1 (Version None)
Quarter: 2010Q2

REPORT INFORMATION
  Report Type: 
  Country: None (occurrence: None)
  Receive Date: 20100408
  Receipt Date: 20100408
  Transmission Date: 20101027
  Serious: Yes (Disabling)
  Sender: FDA-Public Use
  Company Number: None

PATIENT
  Sex: Male
  Weight: 110.2241 kg

DRUGS (1)
  1. ALLODIPINE BESYLATE - 10 MG ARROW PHARM [Suspect]
     Indication: HYPERTENSION
     Dosage: 10 MG 1 X A DAY
     Dates: start: 20090401, end: 20100401

REACTIONS (2)
  - GINGIVAL DISORDER [None]
  - TOOTH DISORDER [None]
